FAERS Safety Report 8579668-4 (Version None)
Quarter: 2012Q3

REPORT INFORMATION
  Report Type: 
  Country: None (occurrence: None)
  Receive Date: 20120808
  Receipt Date: 20120731
  Transmission Date: 20120928
  Serious: Yes (Hospitalization)
  Sender: FDA-Public Use
  Company Number: JP-VERTEX PHARMACEUTICALS INC.-AE-2012-011497

PATIENT
  Age: 58 Year
  Sex: Male

DRUGS (7)
  1. PEGINTERFERON ALFA-2B [Concomitant]
     Route: 058
  2. RABEPRAZOLE SODIUM [Concomitant]
     Route: 048
     Dates: start: 20120608
  3. AMLODIPINE BESYLATE [Concomitant]
     Route: 048
  4. TELAVIC [Suspect]
     Indication: HEPATITIS C
     Route: 048
     Dates: start: 20120604
  5. TALION [Concomitant]
     Route: 048
     Dates: start: 20120604
  6. RIBAVIRIN [Concomitant]
     Route: 048
  7. LOXONIN [Concomitant]
     Route: 048
     Dates: start: 20120604, end: 20120625

REACTIONS (1)
  - RASH ERYTHEMATOUS [None]
